FAERS Safety Report 9984625 (Version 1)
Quarter: 2014Q1

REPORT INFORMATION
  Report Type: Spontaneous
  Country: US (occurrence: US)
  Receive Date: 20140307
  Receipt Date: 20140307
  Transmission Date: 20141002
  Serious: No
  Sender: FDA-Public Use
  Company Number: US-GLAXOSMITHKLINE-A1052246A

PATIENT
  Age: 74 Year
  Sex: Male

DRUGS (5)
  1. BREO ELLIPTA [Suspect]
     Indication: CHRONIC OBSTRUCTIVE PULMONARY DISEASE
     Dosage: 1PUFF TWICE PER DAY
     Route: 055
     Dates: start: 20131126
  2. BLOOD PRESSURE MEDICATION [Concomitant]
  3. NEXIUM [Concomitant]
  4. EYE DROPS [Concomitant]
  5. VENTOLIN HFA [Concomitant]

REACTIONS (2)
  - Buccal mucosal roughening [Unknown]
  - Drug administration error [Unknown]
